FAERS Safety Report 5799298-7 (Version None)
Quarter: 2008Q3

REPORT INFORMATION
  Report Type: 
  Country: None (occurrence: None)
  Receive Date: 20080701
  Receipt Date: 20080619
  Transmission Date: 20090109
  Serious: Yes (Other)
  Sender: FDA-Public Use
  Company Number: DSU-2008-00924

PATIENT
  Sex: Male

DRUGS (1)
  1. BENICAR [Suspect]
     Indication: HYPERTENSION
     Dosage: 20 MG (20 MG, QD), PER ORAL
     Route: 048

REACTIONS (4)
  - CONTUSION [None]
  - LOSS OF CONSCIOUSNESS [None]
  - MOUTH INJURY [None]
  - ORTHOSTATIC HYPOTENSION [None]
